FAERS Safety Report 11077891 (Version 1)
Quarter: 2015Q2

REPORT INFORMATION
  Report Type: Spontaneous
  Country: DE (occurrence: DE)
  Receive Date: 20150430
  Receipt Date: 20150430
  Transmission Date: 20150821
  Serious: Yes (Congenital Anomaly, Other)
  Sender: FDA-Public Use
  Company Number: DE-AUROBINDO-AUR-APL-2015-03690

PATIENT
  Age: 1 Day
  Sex: Male
  Weight: 3 kg

DRUGS (6)
  1. FORSTEO [Concomitant]
     Active Substance: TERIPARATIDE
     Indication: OSTEOPOROSIS
     Dosage: 20 ?G, UNK
     Route: 064
     Dates: start: 20140127, end: 20140223
  2. VITAMIN D [Concomitant]
     Active Substance: CHOLECALCIFEROL
     Indication: OSTEOPOROSIS
     Dosage: 2000 IU, ONCE A DAY
     Route: 064
     Dates: start: 20140127, end: 20141018
  3. CALCIUM [Concomitant]
     Active Substance: CALCIUM
     Indication: OSTEOPOROSIS
     Dosage: UNK
     Route: 064
     Dates: start: 20140127, end: 20141018
  4. ARIXTRA [Concomitant]
     Active Substance: FONDAPARINUX SODIUM
     Indication: FACTOR V LEIDEN MUTATION
     Route: 064
  5. METFORMIN [Suspect]
     Active Substance: METFORMIN HYDROCHLORIDE
     Indication: POLYCYSTIC OVARIES
     Dosage: 1000 MG, ONCE A DAY
     Route: 064
  6. FOLIO FORTE [Concomitant]
     Active Substance: FOLIC ACID\VITAMINS
     Indication: PROPHYLAXIS OF NEURAL TUBE DEFECT
     Dosage: UNK
     Route: 064
     Dates: start: 20140127, end: 20141018

REACTIONS (4)
  - Polycystic ovaries [Unknown]
  - Off label use [Unknown]
  - Talipes [Recovered/Resolved with Sequelae]
  - Foetal exposure during pregnancy [Unknown]

NARRATIVE: CASE EVENT DATE: 20141018
